FAERS Safety Report 9495445 (Version 2)
Quarter: 2013Q4

REPORT INFORMATION
  Report Type: Spontaneous
  Country: US (occurrence: US)
  Receive Date: 20130903
  Receipt Date: 20131007
  Transmission Date: 20140711
  Serious: No
  Sender: FDA-Public Use
  Company Number: US-PFIZER INC-2013250268

PATIENT
  Age: 27 Year
  Sex: Female

DRUGS (6)
  1. EFFEXOR [Suspect]
     Dosage: UNK
  2. BACTRIM DS [Suspect]
     Dosage: UNK
  3. PREZISTA [Suspect]
     Dosage: UNK
  4. NORVIR [Suspect]
     Dosage: UNK
  5. TRUVADA [Suspect]
     Dosage: UNK
  6. KLIMICIN [Suspect]
     Dosage: UNK

REACTIONS (1)
  - Drug hypersensitivity [Unknown]
